FAERS Safety Report 10215900 (Version 1)
Quarter: 2014Q2

REPORT INFORMATION
  Report Type: Spontaneous
  Country: US (occurrence: US)
  Receive Date: 20140604
  Receipt Date: 20140604
  Transmission Date: 20141212
  Serious: Yes (Hospitalization)
  Sender: FDA-Public Use
  Company Number: US-ROCHE-1412953

PATIENT
  Sex: Male

DRUGS (2)
  1. PEGASYS [Suspect]
     Indication: POLYCYTHAEMIA VERA
     Dosage: FORM STRENGTH: 180 MCG/ML
     Route: 058
     Dates: start: 20110331
  2. BENADRYL (UNITED STATES) [Concomitant]

REACTIONS (1)
  - Intestinal obstruction [Unknown]
